FAERS Safety Report 10028667 (Version 3)
Quarter: 2014Q2

REPORT INFORMATION
  Report Type: Spontaneous
  Country: JP (occurrence: JP)
  Receive Date: 20140321
  Receipt Date: 20140612
  Transmission Date: 20141212
  Serious: Yes (Hospitalization)
  Sender: FDA-Public Use
  Company Number: JP-GLAXOSMITHKLINE-B0977564A

PATIENT
  Age: 18 Year
  Sex: Male
  Weight: 65 kg

DRUGS (4)
  1. RELENZA [Suspect]
     Indication: INFLUENZA
     Dosage: 10MG TWICE PER DAY
     Route: 055
     Dates: start: 20140310, end: 20140311
  2. KLARICID [Concomitant]
     Indication: ANTIBIOTIC THERAPY
     Dosage: 200MG TWICE PER DAY
     Route: 048
     Dates: start: 20140310
  3. HUSCODE [Concomitant]
     Indication: COUGH
     Dosage: 3IUAX THREE TIMES PER DAY
     Route: 048
     Dates: start: 20140310
  4. CALONAL [Concomitant]
     Indication: PYREXIA
     Route: 048
     Dates: start: 20140310

REACTIONS (7)
  - Encephalopathy [Recovering/Resolving]
  - Abnormal behaviour [Recovering/Resolving]
  - Inappropriate affect [Recovering/Resolving]
  - Screaming [Recovering/Resolving]
  - Dysarthria [Recovering/Resolving]
  - Aggression [Recovering/Resolving]
  - Memory impairment [Unknown]
